FAERS Safety Report 5906140-X (Version None)
Quarter: 2008Q4

REPORT INFORMATION
  Report Type: 
  Country: None (occurrence: None)
  Receive Date: 20081002
  Receipt Date: 20080925
  Transmission Date: 20090506
  Serious: Yes (Hospitalization, Other)
  Sender: FDA-Public Use
  Company Number: PHHY2008JP22692

PATIENT
  Sex: Male

DRUGS (2)
  1. EXJADE [Suspect]
     Indication: IRON OVERLOAD
     Dosage: 500 MG/DAY
     Route: 048
     Dates: start: 20080803
  2. EXJADE [Suspect]
     Dosage: 1000 MG/DAY
     Route: 048
     Dates: start: 20080801, end: 20080901

REACTIONS (1)
  - ENCEPHALITIS [None]
